FAERS Safety Report 5062522-2 (Version None)
Quarter: 2006Q3

REPORT INFORMATION
  Report Type: 
  Country: None (occurrence: None)
  Receive Date: 20060726
  Receipt Date: 20060613
  Transmission Date: 20061208
  Serious: Yes (Other)
  Sender: FDA-Public Use
  Company Number: 2006SE03352

PATIENT
  Age: 299 Month
  Sex: Female
  Weight: 50 kg

DRUGS (2)
  1. MERONEM [Suspect]
     Indication: CYSTIC FIBROSIS
     Dates: start: 20060601, end: 20060612
  2. NEBCINA [Concomitant]
     Indication: CYSTIC FIBROSIS
     Dates: start: 20060601, end: 20060612

REACTIONS (1)
  - ARTHRALGIA [None]
